FAERS Safety Report 23429073 (Version 3)
Quarter: 2024Q4

REPORT INFORMATION
  Report Type: Spontaneous
  Country: US (occurrence: US)
  Receive Date: 20240122
  Receipt Date: 20241020
  Transmission Date: 20250115
  Serious: No
  Sender: SANOFI AVENTIS
  Company Number: US-SA-SAC20240115000185

PATIENT
  Age: 38 Year
  Sex: Male

DRUGS (1)
  1. DUPIXENT [Suspect]
     Active Substance: DUPILUMAB
     Indication: Dyshidrotic eczema
     Dosage: 300MG, QOW
     Route: 058

REACTIONS (6)
  - Dry skin [Unknown]
  - Skin depigmentation [Unknown]
  - Skin exfoliation [Unknown]
  - Oral herpes [Unknown]
  - Dry eye [Not Recovered/Not Resolved]
  - Off label use [Unknown]
